FAERS Safety Report 23066073 (Version 3)
Quarter: 2023Q4

REPORT INFORMATION
  Report Type: Spontaneous
  Country: MX (occurrence: MX)
  Receive Date: 20231014
  Receipt Date: 20231107
  Transmission Date: 20240110
  Serious: No
  Sender: FDA-Public Use
  Company Number: MX-MLMSERVICE-20231004-4583811-1

PATIENT
  Age: 30 Year
  Sex: Male

DRUGS (12)
  1. DOCETAXEL [Suspect]
     Active Substance: DOCETAXEL\DOCETAXEL ANHYDROUS
     Indication: Angiosarcoma metastatic
     Dosage: TWO CONSECUTIVE DAYS EVERY 2WEEKS
  2. DOCETAXEL [Suspect]
     Active Substance: DOCETAXEL\DOCETAXEL ANHYDROUS
     Dosage: TWO CONSECUTIVE DAYS EVERY 2WEEKS, 120MG; 1 CYCLICAL
  3. DOCETAXEL [Suspect]
     Active Substance: DOCETAXEL\DOCETAXEL ANHYDROUS
     Dosage: TWO CONSECUTIVE DAYS EVERY 2WEEKS; 480MG, 4 CYCLICAL
  4. BEVACIZUMAB [Suspect]
     Active Substance: BEVACIZUMAB
     Indication: Angiosarcoma metastatic
     Dosage: TWO CONSECUTIVE DAYS EVERY 2WEEKS
  5. BEVACIZUMAB [Suspect]
     Active Substance: BEVACIZUMAB
     Dosage: TWO CONSECUTIVE DAYS EVERY 2WEEKS; 3200MG, 4 CYCLICAL
  6. GEMCITABINE [Suspect]
     Active Substance: GEMCITABINE
     Indication: Angiosarcoma metastatic
     Dosage: TWO CONSECUTIVE DAYS EVERY 2WEEKS
  7. GEMCITABINE [Suspect]
     Active Substance: GEMCITABINE
     Dosage: TWO CONSECUTIVE DAYS EVERY 2WEEKS; 5600MG, 4 CYCLICAL
  8. PHENYTOIN [Concomitant]
     Active Substance: PHENYTOIN
     Indication: Generalised tonic-clonic seizure
     Dosage: 100 MG, TID
  9. ESOMEPRAZOLE [Concomitant]
     Active Substance: ESOMEPRAZOLE
  10. VALPROATE MAGNESIUM [Concomitant]
     Active Substance: VALPROATE MAGNESIUM
     Indication: Generalised tonic-clonic seizure
     Dosage: 1200 MG, BID
  11. LEVETIRACETAM [Concomitant]
     Active Substance: LEVETIRACETAM
     Indication: Generalised tonic-clonic seizure
     Dosage: 1500 MG, BID
  12. TRANEXAMIC ACID [Concomitant]
     Active Substance: TRANEXAMIC ACID
     Indication: Haemorrhage
     Dosage: 500 MG
     Route: 045

REACTIONS (7)
  - Taste disorder [Not Recovered/Not Resolved]
  - Pain [Unknown]
  - Diarrhoea [Recovered/Resolved]
  - Nausea [Not Recovered/Not Resolved]
  - Headache [Unknown]
  - Fatigue [Unknown]
  - Mucosal inflammation [Unknown]
